FAERS Safety Report 10420809 (Version 1)
Quarter: 2014Q3

REPORT INFORMATION
  Report Type: Spontaneous
  Country: US (occurrence: None)
  Receive Date: 20140829
  Receipt Date: 20140829
  Transmission Date: 20150326
  Serious: Yes (Death, Hospitalization)
  Sender: FDA-Public Use
  Company Number: None

PATIENT
  Age: 77 Year
  Sex: Male
  Weight: 79.3 kg

DRUGS (2)
  1. TAXOL [Suspect]
     Active Substance: PACLITAXEL
     Dates: end: 20140623
  2. CARBOPLATIN. [Suspect]
     Active Substance: CARBOPLATIN
     Dates: end: 20140623

REACTIONS (7)
  - Respiratory failure [None]
  - Cardiac arrest [None]
  - Vocal cord paralysis [None]
  - Thrombocytopenia [None]
  - Atelectasis [None]
  - Pleural effusion [None]
  - Septic shock [None]

NARRATIVE: CASE EVENT DATE: 20140805
